FAERS Safety Report 8406788-7 (Version None)
Quarter: 2012Q2

REPORT INFORMATION
  Report Type: 
  Country: None (occurrence: None)
  Receive Date: 20120604
  Receipt Date: 20120601
  Transmission Date: 20120825
  Serious: Yes (Other)
  Sender: FDA-Public Use
  Company Number: US-PFIZER INC-2012132695

PATIENT
  Sex: Female

DRUGS (3)
  1. CELEBREX [Suspect]
     Indication: SYSTEMIC LUPUS ERYTHEMATOSUS
     Dosage: 200 MG, DAILY
     Route: 048
  2. PREDNISONE [Suspect]
     Indication: SYSTEMIC LUPUS ERYTHEMATOSUS
     Dosage: 20 MG, DAILY
  3. PLAQUENIL [Suspect]
     Indication: SYSTEMIC LUPUS ERYTHEMATOSUS
     Dosage: 300 MG, DAILY

REACTIONS (3)
  - CROHN'S DISEASE [None]
  - SYSTEMIC LUPUS ERYTHEMATOSUS [None]
  - RHEUMATOID ARTHRITIS [None]
